FAERS Safety Report 13908317 (Version 1)
Quarter: 2017Q3

REPORT INFORMATION
  Report Type: Report from Study
  Country: US (occurrence: US)
  Receive Date: 20170826
  Receipt Date: 20170826
  Transmission Date: 20171127
  Serious: Yes (Other)
  Sender: FDA-Public Use
  Company Number: US-AMGEN-USASL2017126318

PATIENT
  Sex: Male

DRUGS (1)
  1. ENBREL [Suspect]
     Active Substance: ETANERCEPT
     Indication: PSORIATIC ARTHROPATHY
     Dosage: 50 UNK, UNK
     Route: 065

REACTIONS (4)
  - Psoriasis [Unknown]
  - Arthrodesis [Unknown]
  - Osteoarthritis [Unknown]
  - Therapy non-responder [Unknown]
